FAERS Safety Report 4879221-X (Version None)
Quarter: 2006Q1

REPORT INFORMATION
  Report Type: 
  Country: None (occurrence: None)
  Receive Date: 20060112
  Receipt Date: 20060103
  Transmission Date: 20060701
  Serious: Yes (Life-Threatening, Hospitalization)
  Sender: FDA-Public Use
  Company Number: FR-ABBOTT-06P-056-0321162-00

PATIENT
  Age: 47 Year
  Sex: Male
  Weight: 103 kg

DRUGS (3)
  1. NAXY TABLETS [Suspect]
     Indication: GASTRIC ULCER HELICOBACTER
     Route: 048
     Dates: start: 20051020, end: 20051029
  2. AMOXICILLIN [Suspect]
     Indication: HELICOBACTER INFECTION
     Route: 048
     Dates: start: 20051020, end: 20051029
  3. NEXIUM [Concomitant]
     Indication: HELICOBACTER INFECTION
     Dates: start: 20051020

REACTIONS (3)
  - ANGINA PECTORIS [None]
  - ANGIONEUROTIC OEDEMA [None]
  - RASH [None]
